FAERS Safety Report 4887878-2 (Version None)
Quarter: 2006Q1

REPORT INFORMATION
  Report Type: 
  Country: None (occurrence: None)
  Receive Date: 20060123
  Receipt Date: 20050317
  Transmission Date: 20060701
  Serious: Yes (Hospitalization, Other)
  Sender: FDA-Public Use
  Company Number: US-MERCK-0503USA03435

PATIENT
  Age: 53 Year
  Sex: Female
  Weight: 118 kg

DRUGS (5)
  1. VIOXX [Suspect]
     Indication: ARTHRALGIA
     Route: 048
     Dates: start: 20000201, end: 20020501
  2. PREMARIN [Concomitant]
     Route: 065
  3. ASPIRIN [Concomitant]
     Route: 065
  4. INSULIN [Concomitant]
     Route: 065
  5. GLUCOPHAGE [Concomitant]
     Route: 065

REACTIONS (18)
  - ANGINA PECTORIS [None]
  - ARTERIOSCLEROSIS [None]
  - CARDIAC DISORDER [None]
  - CARDIOMYOPATHY [None]
  - CHRONIC OBSTRUCTIVE PULMONARY DISEASE [None]
  - DYSLIPIDAEMIA [None]
  - FEMORAL ARTERIAL STENOSIS [None]
  - GANGRENE [None]
  - HEAT STROKE [None]
  - LOBAR PNEUMONIA [None]
  - MAJOR DEPRESSION [None]
  - NECROSIS [None]
  - PAIN [None]
  - PLEURAL EFFUSION [None]
  - POSTOPERATIVE WOUND INFECTION [None]
  - PRESCRIBED OVERDOSE [None]
  - PROTEINURIA [None]
  - SKIN ULCER [None]
